FAERS Safety Report 23503976 (Version 1)
Quarter: 2024Q1

REPORT INFORMATION
  Report Type: Spontaneous
  Country: RU (occurrence: RU)
  Receive Date: 20240209
  Receipt Date: 20240209
  Transmission Date: 20240409
  Serious: Yes (Other)
  Sender: FDA-Public Use
  Company Number: None

PATIENT
  Age: 63 Year
  Sex: Female
  Weight: 76 kg

DRUGS (2)
  1. FIASP [Suspect]
     Active Substance: INSULIN ASPART
     Indication: Product used for unknown indication
     Dosage: 10 IU, 6 TIMES DAILY
     Route: 058
     Dates: start: 20210716, end: 20211115
  2. INSULIN ASPART [Suspect]
     Active Substance: INSULIN ASPART
     Indication: Product used for unknown indication
     Dosage: 10 IU, 6 TIMES DAILY
     Route: 058
     Dates: start: 20211115, end: 20220117

REACTIONS (2)
  - Scleral discolouration [Recovered/Resolved]
  - Paraesthesia oral [Recovered/Resolved]

NARRATIVE: CASE EVENT DATE: 20210716
